FAERS Safety Report 8138578-7 (Version None)
Quarter: 2012Q1

REPORT INFORMATION
  Report Type: 
  Country: None (occurrence: None)
  Receive Date: 20120215
  Receipt Date: 20120207
  Transmission Date: 20120608
  Serious: Yes (Death, Hospitalization)
  Sender: FDA-Public Use
  Company Number: GB-JNJFOC-20110709693

PATIENT
  Sex: Male
  Weight: 72.6 kg

DRUGS (18)
  1. DIGOXIN [Concomitant]
     Indication: ATRIAL FIBRILLATION
     Route: 048
  2. PREDNISOLONE [Suspect]
     Indication: PROSTATE CANCER METASTATIC
     Route: 048
     Dates: start: 20110628, end: 20110726
  3. PREDNISOLONE [Suspect]
     Route: 048
     Dates: start: 20110726
  4. TINZAPARIN [Concomitant]
     Indication: ATRIAL FIBRILLATION
     Route: 058
     Dates: start: 20110208, end: 20110712
  5. ABIRATERONE ACETATE [Suspect]
     Route: 048
  6. ASPIRIN [Concomitant]
     Indication: ATRIAL FIBRILLATION
     Route: 048
     Dates: start: 20110713
  7. PARACETAMOL [Concomitant]
     Indication: PAIN
     Route: 048
  8. NYSTATIN [Concomitant]
     Route: 065
  9. CODEINE PHOSPHATE [Concomitant]
     Route: 065
  10. ZOPICLONE [Concomitant]
     Route: 065
  11. PREDNISOLONE [Suspect]
     Indication: DECREASED APPETITE
     Route: 048
     Dates: start: 20110726
  12. OMEPRAZOLE [Concomitant]
     Indication: DYSPEPSIA
     Route: 048
     Dates: start: 20110301
  13. ABIRATERONE ACETATE [Suspect]
     Indication: PROSTATE CANCER METASTATIC
     Route: 048
     Dates: start: 20110714, end: 20110720
  14. ENOXAPARIN SODIUM [Concomitant]
     Route: 058
  15. SANDO K [Concomitant]
     Route: 065
     Dates: start: 20110725, end: 20110730
  16. PREDNISOLONE [Suspect]
     Route: 048
     Dates: start: 20110628, end: 20110726
  17. LACTULOSE [Concomitant]
     Route: 065
  18. SENNA [Concomitant]
     Route: 065

REACTIONS (3)
  - MUSCULAR WEAKNESS [None]
  - ABASIA [None]
  - PROSTATE CANCER METASTATIC [None]
